FAERS Safety Report 7699119-1 (Version None)
Quarter: 2011Q3

REPORT INFORMATION
  Report Type: 
  Country: None (occurrence: None)
  Receive Date: 20110819
  Receipt Date: 20101026
  Transmission Date: 20111222
  Serious: Yes (Hospitalization)
  Sender: FDA-Public Use
  Company Number: CO-AMGEN-COLCT2010002982

PATIENT

DRUGS (11)
  1. OMEPRAZOLE [Concomitant]
     Dosage: DOSE NOT PROVIDED
  2. CALCIUM CARBONATE [Concomitant]
     Dosage: DOSE NOT PROVIDED
     Dates: start: 20020101
  3. ARAVA [Concomitant]
     Indication: RHEUMATOID ARTHRITIS
     Dates: start: 20070101
  4. ACETAMINOPHEN [Concomitant]
     Indication: ARTHRALGIA
     Dosage: 500 MG AS NEEDED
  5. CALCITRIOL [Concomitant]
     Dosage: DOSE NOT PROVIDED
     Dates: start: 20020101
  6. IBUPROFEN [Suspect]
     Indication: ARTHRALGIA
     Dosage: 500-1000 MG AS NEEDED
  7. GINKGO BILOBA [Concomitant]
     Indication: VARICOSE VEIN
  8. ETANERCEPT [Suspect]
     Indication: RHEUMATOID ARTHRITIS
     Dosage: 50 MG, QWK
     Dates: start: 20090101, end: 20101017
  9. GINKGO BILOBA [Concomitant]
     Indication: PAIN IN EXTREMITY
  10. ARALEN [Concomitant]
  11. LEVOTHYROXINE SODIUM [Concomitant]
     Indication: HYPOTHYROIDISM
     Dates: start: 19840101

REACTIONS (4)
  - BLOOD PRESSURE INCREASED [None]
  - CHRONIC SINUSITIS [None]
  - BLOOD GLUCOSE INCREASED [None]
  - CONDITION AGGRAVATED [None]
